FAERS Safety Report 20077078 (Version 1)
Quarter: 2021Q4

REPORT INFORMATION
  Report Type: Report from Study
  Country: KR (occurrence: KR)
  Receive Date: 20211116
  Receipt Date: 20211116
  Transmission Date: 20220303
  Serious: Yes (Other)
  Sender: FDA-Public Use
  Company Number: KR-SEATTLE GENETICS-2021SGN04921

PATIENT
  Age: 78 Year
  Sex: Male

DRUGS (16)
  1. ENFORTUMAB VEDOTIN [Suspect]
     Active Substance: ENFORTUMAB VEDOTIN
     Indication: Transitional cell carcinoma
     Dosage: 1.25 MG/KG, DAYS 1 AND 8 EVERY 3-WEEK CYCLE
     Route: 042
     Dates: start: 20210723, end: 20210910
  2. PEMBROLIZUMAB [Suspect]
     Active Substance: PEMBROLIZUMAB
     Indication: Transitional cell carcinoma
     Route: 042
     Dates: start: 20210723, end: 20210903
  3. TAMSULOSIN [Concomitant]
     Active Substance: TAMSULOSIN
     Indication: Urinary hesitation
     Dosage: 0.2 MG, UNKNOWN FREQ.
     Route: 065
     Dates: start: 202004
  4. ASPIRIN [Concomitant]
     Active Substance: ASPIRIN
     Indication: Coronary artery disease
     Route: 065
     Dates: start: 20210716
  5. ROVAZET [Concomitant]
     Indication: Coronary artery disease
     Dosage: 10/10 MG, UNKNOWN FREQ.
     Route: 065
     Dates: start: 20210716
  6. FOSTER [Concomitant]
     Active Substance: BECLOMETHASONE\FORMOTEROL
     Indication: Asthma
     Dosage: 1 PUFF, UNKNOWN FREQ.
     Route: 065
     Dates: start: 202001
  7. NITROGLYCERIN [Concomitant]
     Active Substance: NITROGLYCERIN
     Indication: Prophylaxis
     Dosage: 0.6 MG, UNKNOWN FREQ.
     Route: 065
     Dates: start: 20210802
  8. ISOSORBIDE DINITRATE [Concomitant]
     Active Substance: ISOSORBIDE DINITRATE
     Indication: Prophylaxis
     Dosage: 1 SPRAY, UNKNOWN FREQ.
     Route: 065
     Dates: start: 20210802
  9. FERROUS SULFATE [Concomitant]
     Active Substance: FERROUS SULFATE
     Indication: Anaemia
     Route: 065
     Dates: start: 20210820
  10. FOLIC ACID [Concomitant]
     Active Substance: FOLIC ACID
     Indication: Anaemia
     Route: 065
     Dates: start: 20210820
  11. AMLODIPINE BESYLATE [Concomitant]
     Active Substance: AMLODIPINE BESYLATE
     Indication: Coronary artery disease
     Route: 065
     Dates: start: 20210910
  12. CLOPIDOGREL [Concomitant]
     Active Substance: CLOPIDOGREL BISULFATE
     Indication: Coronary artery disease
     Route: 065
     Dates: start: 20210803
  13. METHYLPREDNISOLONE [Concomitant]
     Active Substance: METHYLPREDNISOLONE
     Indication: Rash
     Route: 065
     Dates: start: 20210918
  14. BEPOTASTINE [Concomitant]
     Active Substance: BEPOTASTINE
     Indication: Rash
     Route: 065
     Dates: start: 20210918
  15. EBASTINE [Concomitant]
     Active Substance: EBASTINE
     Indication: Rash
     Route: 065
     Dates: start: 20210918
  16. LAFUTIDINE [Concomitant]
     Active Substance: LAFUTIDINE
     Indication: Rash
     Route: 065
     Dates: start: 20210918

REACTIONS (1)
  - Lichenoid keratosis [Recovered/Resolved]

NARRATIVE: CASE EVENT DATE: 20210924
